FAERS Safety Report 5862909-1 (Version None)
Quarter: 2008Q3

REPORT INFORMATION
  Report Type: 
  Country: None (occurrence: None)
  Receive Date: 20080828
  Receipt Date: 20080820
  Transmission Date: 20090109
  Serious: Yes (Other)
  Sender: FDA-Public Use
  Company Number: A0744535A

PATIENT
  Sex: Male

DRUGS (8)
  1. ADVAIR DISKUS 100/50 [Suspect]
  2. ASPIRIN [Concomitant]
  3. ATACAND [Concomitant]
  4. FUROSEMIDE [Concomitant]
  5. ALLOPURINOL [Concomitant]
  6. LIPITOR [Concomitant]
  7. COUMADIN [Concomitant]
  8. MULTI-VITAMIN [Concomitant]

REACTIONS (7)
  - ASTHENIA [None]
  - BLOOD IRON INCREASED [None]
  - CORONARY ARTERY BYPASS [None]
  - HAEMOCHROMATOSIS [None]
  - HAEMOGLOBIN DECREASED [None]
  - MYOCARDIAL INFARCTION [None]
  - NASOPHARYNGITIS [None]
